FAERS Safety Report 19275698 (Version 1)
Quarter: 2021Q2

REPORT INFORMATION
  Report Type: Report from Study
  Country: US (occurrence: US)
  Receive Date: 20210519
  Receipt Date: 20210519
  Transmission Date: 20210717
  Serious: Yes (Hospitalization)
  Sender: FDA-Public Use
  Company Number: US-EISAI MEDICAL RESEARCH-EC-2021-092808

PATIENT
  Age: 59 Year
  Sex: Female
  Weight: 63.9 kg

DRUGS (10)
  1. LETROZOLE. [Concomitant]
     Active Substance: LETROZOLE
  2. FOLIC ACID. [Concomitant]
     Active Substance: FOLIC ACID
  3. LYRICA [Concomitant]
     Active Substance: PREGABALIN
  4. LENVIMA [Suspect]
     Active Substance: LENVATINIB
     Indication: HEPATOCELLULAR CARCINOMA
     Route: 048
     Dates: start: 20210127, end: 20210425
  5. CYCLOBENZAPRINE HCL [Concomitant]
     Active Substance: CYCLOBENZAPRINE HYDROCHLORIDE
  6. VITAMIN D [Concomitant]
     Active Substance: VITAMIN D NOS
  7. PREDNISONE. [Concomitant]
     Active Substance: PREDNISONE
  8. HYDROCODONE?ACETAMINOPHEN [Concomitant]
     Active Substance: ACETAMINOPHEN\HYDROCODONE
  9. OMEPRAZOLE. [Concomitant]
     Active Substance: OMEPRAZOLE
  10. ONDANSETRON HCL [Concomitant]
     Active Substance: ONDANSETRON HYDROCHLORIDE

REACTIONS (1)
  - Colonic fistula [Unknown]

NARRATIVE: CASE EVENT DATE: 20210425
